FAERS Safety Report 23424262 (Version 1)
Quarter: 2024Q1

REPORT INFORMATION
  Report Type: Spontaneous
  Country: US (occurrence: US)
  Receive Date: 20240120
  Receipt Date: 20240120
  Transmission Date: 20240410
  Serious: No
  Sender: FDA-Public Use
  Company Number: US-AUROBINDO-AUR-APL-2023-015241

PATIENT
  Age: 89 Year
  Sex: Female
  Weight: 48 kg

DRUGS (4)
  1. CEFDINIR [Suspect]
     Active Substance: CEFDINIR
     Indication: Urinary tract infection
     Dosage: UNK
     Route: 048
     Dates: start: 20230323
  2. CEFDINIR [Suspect]
     Active Substance: CEFDINIR
     Dosage: UNK, TWO TIMES A DAY
     Route: 048
  3. XARELTO [Concomitant]
     Active Substance: RIVAROXABAN
     Indication: Thrombosis
     Dosage: UNK
     Route: 065
  4. ZONISAMIDE [Concomitant]
     Active Substance: ZONISAMIDE
     Indication: Seizure
     Dosage: UNK
     Route: 065

REACTIONS (4)
  - Periorbital swelling [Recovered/Resolved]
  - Lethargy [Recovered/Resolved]
  - Eye swelling [Unknown]
  - Product storage error [Unknown]

NARRATIVE: CASE EVENT DATE: 20230327
